FAERS Safety Report 13034034 (Version 12)
Quarter: 2018Q1

REPORT INFORMATION
  Report Type: Report from Study
  Country: JP (occurrence: JP)
  Receive Date: 20161216
  Receipt Date: 20180306
  Transmission Date: 20180508
  Serious: Yes (Hospitalization, Other)
  Sender: FDA-Public Use
  Company Number: JP-ROCHE-1858381

PATIENT
  Age: 62 Year
  Sex: Male

DRUGS (19)
  1. ALOXI [Concomitant]
     Active Substance: PALONOSETRON HYDROCHLORIDE
     Indication: PREMEDICATION
     Dosage: INJECTION BAG
     Route: 042
     Dates: start: 20161111, end: 20161111
  2. LEUCOCYTE-DEPLETED PACKED RED BLOOD CELLS [Concomitant]
     Dosage: IRRADIATED
     Route: 065
     Dates: start: 20161208, end: 20161208
  3. PETROLATUM, WHITE [Concomitant]
     Active Substance: PETROLATUM
     Indication: DRY SKIN PROPHYLAXIS
     Route: 065
     Dates: start: 20161202
  4. NEORESTAR [Concomitant]
     Indication: PREMEDICATION
     Route: 065
     Dates: start: 20161111, end: 20161111
  5. FEXOFENADINE HYDROCHLORIDE. [Concomitant]
     Active Substance: FEXOFENADINE HYDROCHLORIDE
     Indication: RASH
     Route: 065
     Dates: start: 20161123, end: 20161129
  6. ZOLPIDEM TARTRATE. [Concomitant]
     Active Substance: ZOLPIDEM TARTRATE
     Indication: INSOMNIA
     Route: 065
     Dates: start: 20161125, end: 20161125
  7. CARBOPLATIN. [Suspect]
     Active Substance: CARBOPLATIN
     Indication: NON-SMALL CELL LUNG CANCER STAGE IV
     Dosage: AUC = 6 MG/MLMIN (PER PROTOCOL)?MOST RECENT DOSE PRIOR TO FEBRILE NEUTROPENIA AND PNEUMONITIS: 11/NO
     Route: 042
     Dates: start: 20161111
  8. NEORESTAR [Concomitant]
     Route: 065
     Dates: start: 20161128, end: 20161128
  9. MAGMITT [Concomitant]
     Active Substance: MAGNESIUM OXIDE
     Indication: CONSTIPATION
     Route: 065
     Dates: start: 20161123
  10. DAIPHEN [Concomitant]
     Active Substance: SULFAMETHOXAZOLE\TRIMETHOPRIM
     Indication: INFECTION PROPHYLAXIS
     Route: 065
     Dates: start: 20161210
  11. LEUCOCYTE-DEPLETED PACKED RED BLOOD CELLS [Concomitant]
     Indication: ANAEMIA
     Dosage: IRRADIATED
     Route: 065
     Dates: start: 20161126, end: 20161126
  12. NEORESTAR [Concomitant]
     Route: 065
     Dates: start: 20161124, end: 20161124
  13. AZUNOL OINTMENT [Concomitant]
     Indication: STOMATITIS
     Route: 065
     Dates: start: 20161202
  14. ATEZOLIZUMAB. [Suspect]
     Active Substance: ATEZOLIZUMAB
     Indication: NON-SMALL CELL LUNG CANCER STAGE IV
     Dosage: MOST RECENT DOSE PRIOR TO FIBRILE NEUTROPENIA AND PNEUMONITIS: 11/NOV/2016
     Route: 042
     Dates: start: 20161111
  15. PACLITAXEL. [Suspect]
     Active Substance: PACLITAXEL
     Indication: NON-SMALL CELL LUNG CANCER STAGE IV
     Dosage: DOSE PER PROTOCOL ?MOST RECENT DOSE PRIOR TO FEBRILE NEUTROPENIA AND PNEUMONITIS : 11/NOV/2016 AT 34
     Route: 042
     Dates: start: 20161111
  16. RANITIDINE. [Concomitant]
     Active Substance: RANITIDINE
     Indication: PREMEDICATION
     Route: 065
     Dates: start: 20161111, end: 20161111
  17. FAMOTIDINE. [Concomitant]
     Active Substance: FAMOTIDINE
     Route: 065
     Dates: start: 20161209
  18. OMEPRAZOLE. [Concomitant]
     Active Substance: OMEPRAZOLE
     Indication: PROPHYLAXIS
     Route: 065
     Dates: start: 20161126, end: 20161202
  19. LANSOPRAZOLE. [Concomitant]
     Active Substance: LANSOPRAZOLE
     Indication: PROPHYLAXIS
     Route: 065
     Dates: start: 20161203, end: 20161208

REACTIONS (3)
  - Febrile neutropenia [Recovered/Resolved]
  - Thrombocytopenia [Recovered/Resolved]
  - Pneumonitis [Recovered/Resolved]

NARRATIVE: CASE EVENT DATE: 20161121
